FAERS Safety Report 4332351-3 (Version None)
Quarter: 2004Q1

REPORT INFORMATION
  Report Type: 
  Country: None (occurrence: None)
  Receive Date: 20040329
  Receipt Date: 20040216
  Transmission Date: 20041129
  Serious: No
  Sender: FDA-Public Use
  Company Number: 04P-163-0248785-00

PATIENT
  Age: 42 Year
  Sex: Female
  Weight: 92.5338 kg

DRUGS (5)
  1. HUMIRA [Suspect]
     Indication: RHEUMATOID ARTHRITIS
     Dosage: 40 MG, 1 IN 2 WK, SUBCUTANEOUS
     Route: 058
     Dates: start: 20040105
  2. METHOTREXATE SODIUM [Concomitant]
  3. FOLIC ACID [Concomitant]
  4. DIAZEPAM [Concomitant]
  5. MULTI-VITAMINS [Concomitant]

REACTIONS (5)
  - HEADACHE [None]
  - MENSTRUATION IRREGULAR [None]
  - METRORRHAGIA [None]
  - SINUS CONGESTION [None]
  - UPPER RESPIRATORY TRACT INFECTION [None]
